FAERS Safety Report 20480896 (Version 1)
Quarter: 2022Q1

REPORT INFORMATION
  Report Type: Spontaneous
  Country: US (occurrence: None)
  Receive Date: 20220216
  Receipt Date: 20220216
  Transmission Date: 20220423
  Serious: No
  Sender: FDA-Public Use
  Company Number: None

PATIENT
  Age: 46 Year
  Sex: Male

DRUGS (1)
  1. CABENUVA [Suspect]
     Active Substance: CABOTEGRAVIR\RILPIVIRINE
     Indication: HIV infection
     Dosage: OTHER FREQUENCY : EVERY 28 DAYS;?
     Route: 030
     Dates: start: 20220211, end: 20220211

REACTIONS (2)
  - Fatigue [None]
  - Nausea [None]

NARRATIVE: CASE EVENT DATE: 20220211
